FAERS Safety Report 26206149 (Version 1)
Quarter: 2025Q4

REPORT INFORMATION
  Report Type: Spontaneous
  Country: CA (occurrence: None)
  Receive Date: 20251229
  Receipt Date: 20251229
  Transmission Date: 20260117
  Serious: Yes (Death, Life-Threatening, Hospitalization, Disabling, Congenital Anomaly, Other)
  Sender: ORGANON
  Company Number: CA-ORGANON-O2512CAN001939

PATIENT
  Age: 43 Year
  Sex: Female
  Weight: 96 kg

DRUGS (108)
  1. ALENDRONATE SODIUM [Suspect]
     Active Substance: ALENDRONATE SODIUM
     Indication: Rheumatoid arthritis
     Dosage: UNK
     Route: 061
  2. ALENDRONATE SODIUM [Suspect]
     Active Substance: ALENDRONATE SODIUM
     Indication: Product used for unknown indication
     Dosage: UNK
     Route: 065
  3. ACETAMINOPHEN [Suspect]
     Active Substance: ACETAMINOPHEN
     Indication: Product used for unknown indication
     Dosage: UNK
     Route: 065
  4. ACETAMINOPHEN [Suspect]
     Active Substance: ACETAMINOPHEN
     Dosage: 50 MILLIGRAM
     Route: 065
  5. ACETAMINOPHEN AND CODEINE [Suspect]
     Active Substance: ACETAMINOPHEN\CODEINE PHOSPHATE
     Indication: Product used for unknown indication
     Dosage: UNK
     Route: 065
  6. ACTEMRA [Suspect]
     Active Substance: TOCILIZUMAB
     Indication: Rheumatoid arthritis
     Dosage: 758.2 MILLIGRAM
     Route: 065
  7. AIMOVIG [Suspect]
     Active Substance: ERENUMAB-AOOE
     Indication: Migraine
     Dosage: UNK
     Route: 065
  8. AIMOVIG [Suspect]
     Active Substance: ERENUMAB-AOOE
     Indication: Migraine
     Dosage: UNK (DOSAGE FORM: SOLUTION)
     Route: 065
  9. ARAVA [Suspect]
     Active Substance: LEFLUNOMIDE
     Indication: Rheumatoid arthritis
     Dosage: 20 MILLIGRAM
     Route: 065
  10. ATOMOXETINE HYDROCHLORIDE [Suspect]
     Active Substance: ATOMOXETINE HYDROCHLORIDE
     Indication: Migraine
     Dosage: 1 DOSAGE FORM
     Route: 065
  11. BERINERT [Suspect]
     Active Substance: HUMAN C1-ESTERASE INHIBITOR
     Indication: Product used for unknown indication
     Dosage: UNK
     Route: 065
  12. BOTULINUM TOXIN TYPE A [Suspect]
     Active Substance: BOTULINUM TOXIN TYPE A
     Indication: Product used for unknown indication
     Dosage: POWDER FOR SOLUTION
     Route: 065
  13. BUTRANS [Suspect]
     Active Substance: BUPRENORPHINE
     Indication: Product used for unknown indication
     Dosage: PATCH
     Route: 065
  14. CALCIUM CARBONATE\CHOLECALCIFEROL [Suspect]
     Active Substance: CALCIUM CARBONATE\CHOLECALCIFEROL
     Indication: Product used for unknown indication
     Dosage: UNK
     Route: 065
  15. CANDESARTAN [Suspect]
     Active Substance: CANDESARTAN
     Indication: Migraine
     Dosage: UNK
     Route: 061
  16. CELECOXIB [Suspect]
     Active Substance: CELECOXIB
     Indication: Rheumatoid arthritis
     Dosage: 2 DOSAGE FORM, QD
     Route: 065
  17. CELECOXIB [Suspect]
     Active Substance: CELECOXIB
     Dosage: 1 DOSAGE FORM, QD
     Route: 065
  18. CERTOLIZUMAB PEGOL [Suspect]
     Active Substance: CERTOLIZUMAB PEGOL
     Indication: Psoriasis
     Dosage: UNK
     Route: 065
  19. CETIRIZINE HYDROCHLORIDE [Suspect]
     Active Substance: CETIRIZINE HYDROCHLORIDE
     Indication: Rheumatoid arthritis
     Dosage: 10 MILLIGRAM, QD
     Route: 065
  20. CETIRIZINE HYDROCHLORIDE [Suspect]
     Active Substance: CETIRIZINE HYDROCHLORIDE
     Indication: Off label use
     Dosage: 10 MILLIGRAM
     Route: 065
  21. CHLORHEXIDINE GLUCONATE [Suspect]
     Active Substance: CHLORHEXIDINE GLUCONATE
     Indication: Product used for unknown indication
     Dosage: UNK
     Route: 065
  22. CIMZIA [Suspect]
     Active Substance: CERTOLIZUMAB PEGOL
     Indication: Rheumatoid arthritis
     Dosage: UNK
     Route: 065
  23. CIMZIA [Suspect]
     Active Substance: CERTOLIZUMAB PEGOL
     Indication: Psoriasis
     Dosage: UNK
     Route: 065
  24. CIMZIA [Suspect]
     Active Substance: CERTOLIZUMAB PEGOL
     Dosage: UNK
     Route: 065
  25. CIMZIA [Suspect]
     Active Substance: CERTOLIZUMAB PEGOL
     Dosage: UNK
     Route: 065
  26. COSENTYX [Suspect]
     Active Substance: SECUKINUMAB
     Indication: Psoriatic arthropathy
     Dosage: UNK
     Route: 065
  27. DESOXIMETASONE [Suspect]
     Active Substance: DESOXIMETASONE
     Indication: Rheumatoid arthritis
     Dosage: 25 MILLIGRAM
  28. DICLOFENAC DIETHYLAMINE [Suspect]
     Active Substance: DICLOFENAC DIETHYLAMINE
     Indication: Product used for unknown indication
     Dosage: UNK
     Route: 065
  29. DICLOFENAC DIETHYLAMINE [Suspect]
     Active Substance: DICLOFENAC DIETHYLAMINE
     Dosage: 50 MILLIGRAM
     Route: 065
  30. DICLOFENAC POTASSIUM [Suspect]
     Active Substance: DICLOFENAC POTASSIUM
     Indication: Product used for unknown indication
     Dosage: UNK
     Route: 065
  31. DOMPERIDONE MALEATE [Suspect]
     Active Substance: DOMPERIDONE MALEATE
     Indication: Product used for unknown indication
     Dosage: UNK
     Route: 065
  32. ENBREL [Suspect]
     Active Substance: ETANERCEPT
     Indication: Rheumatoid arthritis
     Dosage: 50 MILLIGRAM, QW
     Route: 065
  33. ENBREL [Suspect]
     Active Substance: ETANERCEPT
     Dosage: 50 MILLIGRAM, QW
     Route: 065
  34. ERELZI [Suspect]
     Active Substance: ETANERCEPT-SZZS
     Indication: Rheumatoid arthritis
     Dosage: 50 MILLIGRAM, QW
  35. FLUMETHASONE PIVALATE [Suspect]
     Active Substance: FLUMETHASONE PIVALATE
     Indication: Product used for unknown indication
     Dosage: UNK
     Route: 065
  36. FOLIC ACID [Suspect]
     Active Substance: FOLIC ACID
     Indication: Rheumatoid arthritis
     Dosage: 1 MILLIGRAM
     Route: 065
  37. GOLD [Suspect]
     Active Substance: GOLD
     Indication: Product used for unknown indication
     Dosage: UNK
     Route: 065
  38. GOLD SODIUM THIOMALATE [Suspect]
     Active Substance: GOLD SODIUM THIOMALATE
     Indication: Product used for unknown indication
     Dosage: UNK
     Route: 065
  39. HYDROCORTISONE BUTYRATE [Suspect]
     Active Substance: HYDROCORTISONE BUTYRATE
     Indication: Rheumatoid arthritis
     Dosage: UNK
     Route: 065
  40. HYDROXYCHLOROQUINE SULFATE [Suspect]
     Active Substance: HYDROXYCHLOROQUINE SULFATE
     Indication: Rheumatoid arthritis
     Dosage: 40 MILLIGRAM, QD
     Route: 065
  41. HYRIMOZ [Suspect]
     Active Substance: ADALIMUMAB-ADAZ
     Indication: Product used for unknown indication
     Dosage: 40 MILLIGRAM
  42. HYRIMOZ [Suspect]
     Active Substance: ADALIMUMAB-ADAZ
     Indication: Product used for unknown indication
     Dosage: SOLUTION SUBCUTANEOUS
  43. LAMICTAL [Suspect]
     Active Substance: LAMOTRIGINE
     Indication: Product used for unknown indication
     Dosage: 25 MILLIGRAM
     Route: 061
  44. METFORMIN HYDROCHLORIDE [Suspect]
     Active Substance: METFORMIN HYDROCHLORIDE
     Indication: Migraine
     Dosage: UNK
     Route: 065
  45. METHOTREXATE [Suspect]
     Active Substance: METHOTREXATE
     Indication: Rheumatoid arthritis
     Dosage: 20 MILLIGRAM, QD
     Route: 061
  46. METHYLPREDNISOLONE SODIUM SUCCINATE [Suspect]
     Active Substance: METHYLPREDNISOLONE SODIUM SUCCINATE
     Indication: Product used for unknown indication
     Dosage: UNK
     Route: 065
  47. MYRBETRIQ [Suspect]
     Active Substance: MIRABEGRON
     Indication: Product used for unknown indication
     Dosage: 1 DOSAGE FORM, QD
     Route: 065
  48. NAPROXEN [Suspect]
     Active Substance: NAPROXEN
     Indication: Product used for unknown indication
     Dosage: 1000 MILLIGRAM, QD
     Route: 065
  49. NAPROXEN SODIUM [Suspect]
     Active Substance: NAPROXEN SODIUM
     Indication: Rheumatoid arthritis
     Dosage: 500 MILLIGRAM
     Route: 065
  50. NUCALA [Suspect]
     Active Substance: MEPOLIZUMAB
     Indication: Product used for unknown indication
     Dosage: UNK
     Route: 065
  51. ORENCIA [Suspect]
     Active Substance: ABATACEPT
     Indication: Product used for unknown indication
     Dosage: UNK
     Route: 065
  52. ORENCIA [Suspect]
     Active Substance: ABATACEPT
     Dosage: UNK
     Route: 065
  53. OXYCODONE [Suspect]
     Active Substance: OXYCODONE
     Indication: Product used for unknown indication
     Dosage: UNK
     Route: 065
  54. OXYCODONE TEREPHTHALATE [Suspect]
     Active Substance: OXYCODONE TEREPHTHALATE
     Indication: Product used for unknown indication
     Dosage: UNK
     Route: 065
  55. PHTHALYLSULFATHIAZOLE [Suspect]
     Active Substance: PHTHALYLSULFATHIAZOLE
     Indication: Rheumatoid arthritis
     Dosage: 500 MILLIGRAM
     Route: 065
  56. PHTHALYLSULFATHIAZOLE [Suspect]
     Active Substance: PHTHALYLSULFATHIAZOLE
     Dosage: 1000 MILLIGRAM
     Route: 065
  57. POVIDONE-IODINE [Suspect]
     Active Substance: POVIDONE-IODINE
     Indication: Product used for unknown indication
     Dosage: UNK
     Route: 065
  58. PREDNISONE [Suspect]
     Active Substance: PREDNISONE
     Indication: Rheumatoid arthritis
     Dosage: 5 MILLIGRAM
     Route: 061
  59. PSEUDOEPHEDRINE HYDROCHLORIDE [Suspect]
     Active Substance: PSEUDOEPHEDRINE HYDROCHLORIDE
     Indication: Product used for unknown indication
     Dosage: 1 MILLIGRAM
     Route: 065
  60. RAMIPRIL [Suspect]
     Active Substance: RAMIPRIL
     Indication: Rheumatoid arthritis
     Dosage: UNK
  61. RANITIDINE [Suspect]
     Active Substance: RANITIDINE
     Indication: Rheumatoid arthritis
     Dosage: UNK
     Route: 065
  62. REMICADE [Suspect]
     Active Substance: INFLIXIMAB
     Indication: Rheumatoid arthritis
     Dosage: POWDER FOR SOLUTION INTRAVENOUS
  63. RITUXIMAB [Suspect]
     Active Substance: RITUXIMAB
     Indication: Rheumatoid arthritis
     Dosage: 350 MILLIGRAM
     Route: 065
  64. RITUXIMAB [Suspect]
     Active Substance: RITUXIMAB
     Dosage: 350 MILLIGRAM
     Route: 065
  65. RITUXIMAB [Suspect]
     Active Substance: RITUXIMAB
     Dosage: UNK
     Route: 065
  66. DIETARY SUPPLEMENT\HERBALS [Suspect]
     Active Substance: DIETARY SUPPLEMENT\HERBALS
     Indication: Product used for unknown indication
     Dosage: UNK (DROPS ORAL)
     Route: 061
  67. DIETARY SUPPLEMENT\HERBALS [Suspect]
     Active Substance: DIETARY SUPPLEMENT\HERBALS
     Dosage: UNK (ORAL DROPS)
     Route: 061
  68. APREMILAST [Suspect]
     Active Substance: APREMILAST
     Indication: Product used for unknown indication
     Dosage: 6 MILLIGRAM, QD
     Route: 065
  69. APREMILAST [Suspect]
     Active Substance: APREMILAST
     Indication: Product used for unknown indication
     Dosage: 6 MILLIGRAM, QD
     Route: 065
  70. DICLOFENAC SODIUM [Suspect]
     Active Substance: DICLOFENAC SODIUM
     Indication: Product used for unknown indication
     Dosage: UNK
     Route: 065
  71. DICLOFENAC SODIUM [Suspect]
     Active Substance: DICLOFENAC SODIUM
     Dosage: UNK
     Route: 065
  72. DICLOFENAC SODIUM [Suspect]
     Active Substance: DICLOFENAC SODIUM
     Indication: Product used for unknown indication
     Dosage: UNK
     Route: 065
  73. SIMPONI [Suspect]
     Active Substance: GOLIMUMAB
     Indication: Rheumatoid arthritis
     Dosage: SOLUTION
     Route: 065
  74. SIMPONI [Suspect]
     Active Substance: GOLIMUMAB
     Indication: Prostatic specific antigen
  75. SIMPONI [Suspect]
     Active Substance: GOLIMUMAB
     Indication: Rheumatoid arthritis
     Dosage: SOLUTION SUBCUTANEOUS
  76. SIMPONI [Suspect]
     Active Substance: GOLIMUMAB
     Indication: Prostatic specific antigen
  77. GOLD SODIUM THIOMALATE [Suspect]
     Active Substance: GOLD SODIUM THIOMALATE
     Indication: Rheumatoid arthritis
     Dosage: 300 MILLIGRAM, QD
     Route: 065
  78. GOLD SODIUM THIOMALATE [Suspect]
     Active Substance: GOLD SODIUM THIOMALATE
     Indication: Product used for unknown indication
     Dosage: UNK
     Route: 065
  79. TOFACITINIB [Suspect]
     Active Substance: TOFACITINIB
     Indication: Rheumatoid arthritis
     Dosage: 10 MILLIGRAM, QD
     Route: 065
  80. TOFACITINIB CITRATE [Suspect]
     Active Substance: TOFACITINIB CITRATE
     Indication: Product used for unknown indication
     Dosage: 0.5 MILLIGRAM, QD
     Route: 065
  81. TOFACITINIB CITRATE [Suspect]
     Active Substance: TOFACITINIB CITRATE
     Dosage: 10 MILLIGRAM, QD
     Route: 065
  82. TOPIRAMATE [Suspect]
     Active Substance: TOPIRAMATE
     Indication: Migraine
     Dosage: 3 MILLIGRAM, QD
     Route: 065
  83. TRAMADOL HYDROCHLORIDE [Suspect]
     Active Substance: TRAMADOL HYDROCHLORIDE
     Indication: Product used for unknown indication
     Dosage: UNK
     Route: 065
  84. TRIAMCINOLONE ACETONIDE [Suspect]
     Active Substance: TRIAMCINOLONE ACETONIDE
     Indication: Rheumatoid arthritis
     Dosage: SUSPENSION INTRA- ARTICULAR
  85. ATIVAN [Concomitant]
     Active Substance: LORAZEPAM
     Indication: Product used for unknown indication
     Dosage: UNK
     Route: 065
  86. CALCIUM [Concomitant]
     Active Substance: CALCIUM
     Indication: Product used for unknown indication
     Dosage: UNK
     Route: 065
  87. CALCIUM [Concomitant]
     Active Substance: CALCIUM
     Dosage: UNK
     Route: 065
  88. CALCIUM GLUBIONATE [Concomitant]
     Active Substance: CALCIUM GLUBIONATE
     Indication: Product used for unknown indication
     Dosage: UNK
     Route: 065
  89. CALCIUM GLUBIONATE [Concomitant]
     Active Substance: CALCIUM GLUBIONATE
     Dosage: UNK
     Route: 065
  90. CALCIUM GLUCONATE [Concomitant]
     Active Substance: CALCIUM GLUCONATE
     Indication: Product used for unknown indication
     Dosage: UNK
     Route: 065
  91. CALCIUM GLUCONATE [Concomitant]
     Active Substance: CALCIUM GLUCONATE
     Dosage: UNK
     Route: 065
  92. CYANOCOBALAMIN [Concomitant]
     Active Substance: CYANOCOBALAMIN
     Indication: Product used for unknown indication
     Dosage: UNK
     Route: 065
  93. CYANOCOBALAMIN [Concomitant]
     Active Substance: CYANOCOBALAMIN
     Dosage: UNK
     Route: 065
  94. GLUCOSAMINE [Concomitant]
     Active Substance: GLUCOSAMINE
     Indication: Product used for unknown indication
     Dosage: UNK
     Route: 065
  95. GLUCOSAMINE [Concomitant]
     Active Substance: GLUCOSAMINE
     Dosage: UNK
     Route: 065
  96. IBUPROFEN [Concomitant]
     Active Substance: IBUPROFEN
     Indication: Product used for unknown indication
     Dosage: UNK
     Route: 065
  97. IBUPROFEN [Concomitant]
     Active Substance: IBUPROFEN
     Dosage: UNK
     Route: 065
  98. LANSOPRAZOLE [Concomitant]
     Active Substance: LANSOPRAZOLE
     Indication: Product used for unknown indication
     Dosage: UNK
     Route: 065
  99. LANSOPRAZOLE [Concomitant]
     Active Substance: LANSOPRAZOLE
     Indication: Product used for unknown indication
     Dosage: UNK
     Route: 065
  100. LISINOPRIL [Concomitant]
     Active Substance: LISINOPRIL
     Indication: Product used for unknown indication
     Dosage: UNK
     Route: 065
  101. LISINOPRIL [Concomitant]
     Active Substance: LISINOPRIL
     Dosage: UNK
     Route: 065
  102. PREDNISOLONE [Concomitant]
     Active Substance: PREDNISOLONE
     Indication: Product used for unknown indication
     Dosage: UNK
     Route: 065
  103. QUETIAPINE FUMARATE [Concomitant]
     Active Substance: QUETIAPINE FUMARATE
     Indication: Product used for unknown indication
     Dosage: UNK
     Route: 065
  104. QUETIAPINE FUMARATE [Concomitant]
     Active Substance: QUETIAPINE FUMARATE
     Dosage: UNK
     Route: 065
  105. RISEDRONATE SODIUM [Concomitant]
     Active Substance: RISEDRONATE SODIUM
     Indication: Product used for unknown indication
     Dosage: UNK
     Route: 065
  106. SULFASALAZINE [Concomitant]
     Active Substance: SULFASALAZINE
     Indication: Product used for unknown indication
     Dosage: UNK
     Route: 065
  107. FISH OIL [Concomitant]
     Active Substance: FISH OIL
     Indication: Product used for unknown indication
     Dosage: UNK
     Route: 065
  108. FISH OIL [Concomitant]
     Active Substance: FISH OIL
     Dosage: UNK
     Route: 065

REACTIONS (18)
  - Abdominal discomfort [Fatal]
  - Abdominal pain [Fatal]
  - Abdominal pain upper [Fatal]
  - Alopecia [Fatal]
  - Anti-cyclic citrullinated peptide antibody positive [Fatal]
  - Arthralgia [Fatal]
  - Arthropathy [Fatal]
  - Asthenia [Fatal]
  - Blepharospasm [Fatal]
  - Blister [Fatal]
  - Blood cholesterol increased [Fatal]
  - Breast cancer stage III [Fatal]
  - Bursitis [Fatal]
  - C-reactive protein increased [Fatal]
  - Condition aggravated [Fatal]
  - Confusional state [Fatal]
  - Depression [Fatal]
  - Product use in unapproved indication [Unknown]
